FAERS Safety Report 19650888 (Version 1)
Quarter: 2021Q3

REPORT INFORMATION
  Report Type: Spontaneous
  Country: US (occurrence: US)
  Receive Date: 20210802
  Receipt Date: 20210802
  Transmission Date: 20211014
  Serious: No
  Sender: FDA-Public Use
  Company Number: None

PATIENT
  Age: 68 Year
  Sex: Male
  Weight: 109 kg

DRUGS (1)
  1. CEFAZOLIN (CEFAZOLIN NA 1GM/VIL INJ) [Suspect]
     Active Substance: CEFAZOLIN
     Indication: ANTIBIOTIC PROPHYLAXIS
     Dosage: OTHER ROUTE:IV?
     Route: 042
     Dates: start: 20210120, end: 20210120

REACTIONS (5)
  - Drug hypersensitivity [None]
  - Pruritus [None]
  - Urticaria [None]
  - Rash [None]
  - Erythema [None]

NARRATIVE: CASE EVENT DATE: 20210121
